FAERS Safety Report 4602412-X (Version None)
Quarter: 2005Q1

REPORT INFORMATION
  Report Type: 
  Country: None (occurrence: None)
  Receive Date: 20050307
  Receipt Date: 20050223
  Transmission Date: 20050727
  Serious: No
  Sender: FDA-Public Use
  Company Number: 05H-163-0292284

PATIENT
  Age: 85 Year
  Sex: Female

DRUGS (2)
  1. MORPHINE SUL INJ [Suspect]
     Indication: PAIN
  2. PROMETHAZINE [Suspect]
     Indication: PAIN
     Dosage: 12.5 MG

REACTIONS (2)
  - DELIRIUM [None]
  - DRUG INTERACTION POTENTIATION [None]
